FAERS Safety Report 7918254-3 (Version None)
Quarter: 2011Q4

REPORT INFORMATION
  Report Type: 
  Country: None (occurrence: None)
  Receive Date: 20111114
  Receipt Date: 20111106
  Transmission Date: 20120403
  Serious: Yes (Hospitalization, Other)
  Sender: FDA-Public Use
  Company Number: USA/USA/11/0021538

PATIENT
  Age: 48 Year
  Sex: Female

DRUGS (11)
  1. LAMOTRIGINE [Suspect]
     Indication: AFFECTIVE DISORDER
     Dates: start: 20110101, end: 20110101
  2. LAMOTRIGINE [Suspect]
     Indication: DEPRESSION
     Dates: start: 20110101, end: 20110101
  3. COREG [Concomitant]
  4. SENNA PLUS (SENNA ALEXANDRINA) [Concomitant]
  5. COLACE (DOCUSATE SODIUM) [Concomitant]
  6. SYNTHROID [Concomitant]
  7. LAMOTRIGINE [Suspect]
     Indication: AFFECTIVE DISORDER
     Dosage: 100 MG, 1 IN 1 D, ORAL
     Route: 048
  8. LAMOTRIGINE [Suspect]
     Indication: DEPRESSION
     Dosage: 100 MG, 1 IN 1 D, ORAL
     Route: 048
  9. CELEXA [Concomitant]
  10. COUMADIN [Concomitant]
  11. RAMIPRIL [Concomitant]

REACTIONS (7)
  - DRUG RASH WITH EOSINOPHILIA AND SYSTEMIC SYMPTOMS [None]
  - STEVENS-JOHNSON SYNDROME [None]
  - DRUG PRESCRIBING ERROR [None]
  - SUNBURN [None]
  - SKIN EXFOLIATION [None]
  - PRODUCT SUBSTITUTION ISSUE [None]
  - NERVE INJURY [None]
